FAERS Safety Report 9676966 (Version 1)
Quarter: 2013Q4

REPORT INFORMATION
  Report Type: Report from Study
  Country: US (occurrence: US)
  Receive Date: 20131108
  Receipt Date: 20131108
  Transmission Date: 20140711
  Serious: Yes (Other)
  Sender: FDA-Public Use
  Company Number: US-PFIZER INC-2013314056

PATIENT
  Age: 54 Year
  Sex: Female
  Weight: 109.84 kg

DRUGS (4)
  1. TOFACITINIB CITRATE [Suspect]
     Indication: RHEUMATOID ARTHRITIS
     Dosage: 5 MG, BID
     Route: 048
     Dates: start: 20120808, end: 20131009
  2. LIQUID IRON [Concomitant]
     Indication: SUPPLEMENTATION THERAPY
     Dosage: 1 TSP, QD
     Route: 048
     Dates: start: 20120512
  3. PRILOSEC [Concomitant]
     Indication: DYSPEPSIA
     Dosage: 20 MG, QD
     Route: 048
     Dates: start: 20120706
  4. VITAMIN B12 [Concomitant]
     Indication: SUPPLEMENTATION THERAPY
     Dosage: 1000 UG, QD
     Route: 048
     Dates: start: 201207

REACTIONS (1)
  - Papillary thyroid cancer [Recovered/Resolved]
